FAERS Safety Report 8313222-4 (Version None)
Quarter: 2012Q2

REPORT INFORMATION
  Report Type: 
  Country: None (occurrence: None)
  Receive Date: 20120426
  Receipt Date: 20120424
  Transmission Date: 20120825
  Serious: Yes (Hospitalization, Other)
  Sender: FDA-Public Use
  Company Number: US-BAYER-2012-008208

PATIENT
  Age: 57 Year
  Sex: Female
  Weight: 59.864 kg

DRUGS (11)
  1. GABAPENTIN [Concomitant]
     Dosage: 100 MG, UNK
  2. CALCIUM [Concomitant]
     Dosage: 600 TAB
  3. FOSAMAX [Concomitant]
     Dosage: 10 MG, UNK
  4. VITAMIN D [Concomitant]
     Dosage: 50000 IU, UNK
  5. IMIPRAMINE HCL [Concomitant]
     Dosage: 50 MG, UNK
  6. BETASERON [Suspect]
     Indication: PRODUCT USED FOR UNKNOWN INDICATION
     Dosage: .3 MG, UNK
     Route: 058
  7. NITROFURANTOIN [Concomitant]
     Dosage: 100 MG, UNK
  8. VITAMIN D [Concomitant]
  9. CRAN-MAX [Concomitant]
     Dosage: 500 MG, UNK
  10. ASCORBIC ACID [Concomitant]
     Dosage: 100 MG, UNK
  11. ASPIRIN [Concomitant]
     Dosage: 81 MG, UNK

REACTIONS (4)
  - INJECTION SITE PAIN [None]
  - ADVERSE DRUG REACTION [None]
  - CELLULITIS [None]
  - PAIN [None]
